FAERS Safety Report 7101268-3 (Version None)
Quarter: 2010Q4

REPORT INFORMATION
  Report Type: 
  Country: None (occurrence: None)
  Receive Date: 20101115
  Receipt Date: 20100409
  Transmission Date: 20110411
  Serious: No
  Sender: FDA-Public Use
  Company Number: US-PFIZER INC-2010042164

PATIENT
  Sex: Female
  Weight: 54 kg

DRUGS (1)
  1. CLEOCIN [Suspect]
     Indication: DERMATITIS
     Dosage: UNK
     Route: 061
     Dates: start: 20100326, end: 20100327

REACTIONS (4)
  - BREAST DISCOMFORT [None]
  - BREAST PAIN [None]
  - BREAST SWELLING [None]
  - ERYTHEMA [None]
